FAERS Safety Report 19586029 (Version 2)
Quarter: 2021Q3

REPORT INFORMATION
  Report Type: Spontaneous
  Country: JP (occurrence: JP)
  Receive Date: 20210721
  Receipt Date: 20210805
  Transmission Date: 20211014
  Serious: Yes (Hospitalization)
  Sender: FDA-Public Use
  Company Number: JP-ORION CORPORATION ORION PHARMA-ENTC2021-0175

PATIENT
  Age: 68 Year
  Sex: Female

DRUGS (1)
  1. STALEVO [Suspect]
     Active Substance: CARBIDOPA\ENTACAPONE\LEVODOPA
     Indication: PARKINSON^S DISEASE
     Dosage: STRENGTH: LEVODOPA 50 MG/CARBIDOPA HYDRATE 5.4 MG/ENTACAPONE 100 MG, 50 MG
     Route: 048

REACTIONS (6)
  - Product complaint [Unknown]
  - Wrong technique in product usage process [Unknown]
  - Fracture [Unknown]
  - Fall [Unknown]
  - Product use complaint [Unknown]
  - Product size issue [Unknown]

NARRATIVE: CASE EVENT DATE: 20210629
